FAERS Safety Report 23816815 (Version 1)
Quarter: 2024Q2

REPORT INFORMATION
  Report Type: Spontaneous
  Country: DE (occurrence: DE)
  Receive Date: 20240504
  Receipt Date: 20240504
  Transmission Date: 20240716
  Serious: Yes (Other)
  Sender: FDA-Public Use
  Company Number: DE-EMBRYOTOX-202301351

PATIENT
  Age: 1 Day
  Sex: Male
  Weight: 2.79 kg

DRUGS (1)
  1. OXCARBAZEPINE [Suspect]
     Active Substance: OXCARBAZEPINE
     Indication: Partial seizures
     Dosage: UNK (1600 [MG/D ]/ 1350 MG/D (600-0-750) UNTIL GW 13, AFTERWARDS 1600 MG/D (600-0-1000))
     Route: 065
     Dates: start: 20221120, end: 20230816

REACTIONS (4)
  - Agitation neonatal [Unknown]
  - Neonatal hypoxia [Recovered/Resolved]
  - Atrial septal defect [Recovered/Resolved]
  - Foetal exposure during pregnancy [Unknown]

NARRATIVE: CASE EVENT DATE: 20230801
